FAERS Safety Report 6781928-4 (Version None)
Quarter: 2010Q2

REPORT INFORMATION
  Report Type: 
  Country: None (occurrence: None)
  Receive Date: 20100618
  Receipt Date: 20100618
  Transmission Date: 20101027
  Serious: No
  Sender: FDA-Public Use
  Company Number: None

PATIENT
  Sex: Male
  Weight: 119.9 kg

DRUGS (2)
  1. CISPLATIN [Suspect]
     Dosage: 229 MG
     Dates: end: 20100608
  2. TAXOL [Suspect]
     Dosage: 759 MG
     Dates: end: 20100608

REACTIONS (1)
  - LYMPHOPENIA [None]
